FAERS Safety Report 8238198-X (Version None)
Quarter: 2012Q1

REPORT INFORMATION
  Report Type: 
  Country: None (occurrence: None)
  Receive Date: 20120327
  Receipt Date: 20120321
  Transmission Date: 20120608
  Serious: Yes (Life-Threatening, Disabling, Other)
  Sender: FDA-Public Use
  Company Number: PHHY2012JP020432

PATIENT
  Age: 58 Year
  Sex: Male

DRUGS (7)
  1. FLUDARABINE PHOSPHATE [Concomitant]
     Dosage: 150 MG/M2, UNK
  2. IRRADIATION [Concomitant]
     Dosage: 2 GY, UNK
  3. NEORAL [Suspect]
     Indication: PROPHYLAXIS AGAINST GRAFT VERSUS HOST DISEASE
     Dosage: UNK UKN, UNK
     Route: 048
     Dates: start: 20110501
  4. BUSULFAN [Concomitant]
     Dosage: 12.8 MG/M2, UNK
  5. CORTICOSTEROIDS [Concomitant]
     Dosage: UNK UKN, UNK
  6. METHOTREXATE [Concomitant]
     Indication: STEM CELL TRANSPLANT
     Dosage: UNK UKN, UNK
     Route: 048
     Dates: start: 20110501
  7. SOLU-MEDROL [Concomitant]
     Dosage: UNK UKN, UNK
     Route: 042
     Dates: start: 20110501

REACTIONS (15)
  - NEUROLOGIC NEGLECT SYNDROME [None]
  - BACTERIAL SEPSIS [None]
  - ENGRAFTMENT SYNDROME [None]
  - SUBARACHNOID HAEMORRHAGE [None]
  - HEADACHE [None]
  - HEMIPARESIS [None]
  - PYREXIA [None]
  - BACILLUS INFECTION [None]
  - SEPTIC EMBOLUS [None]
  - ACUTE GRAFT VERSUS HOST DISEASE [None]
  - ENCEPHALITIS [None]
  - DEPRESSED LEVEL OF CONSCIOUSNESS [None]
  - HEMIPLEGIA [None]
  - MENINGITIS [None]
  - HAEMORRHAGIC INFARCTION [None]
